FAERS Safety Report 16681326 (Version 1)
Quarter: 2019Q3

REPORT INFORMATION
  Report Type: Spontaneous
  Country: ZA (occurrence: ZA)
  Receive Date: 20190808
  Receipt Date: 20190808
  Transmission Date: 20191004
  Serious: Yes (Hospitalization, Other)
  Sender: FDA-Public Use
  Company Number: ZA-ROCHE-2372971

PATIENT
  Age: 67 Year
  Sex: Female

DRUGS (4)
  1. ECOTRIN [Concomitant]
     Active Substance: ASPIRIN
     Indication: PRODUCT USED FOR UNKNOWN INDICATION
     Route: 065
  2. TAREG [Concomitant]
     Active Substance: VALSARTAN
     Indication: HYPERTENSION
  3. ASPAVOR [Concomitant]
     Active Substance: ATORVASTATIN
     Indication: HYPERCHOLESTEROLAEMIA
  4. ACTILYSE [Suspect]
     Active Substance: ALTEPLASE
     Indication: CEREBROVASCULAR ACCIDENT
     Route: 042
     Dates: start: 20190730, end: 20190730

REACTIONS (3)
  - Haemorrhagic transformation stroke [Recovering/Resolving]
  - Haemorrhagic infarction [Recovering/Resolving]
  - Bradycardia [Unknown]

NARRATIVE: CASE EVENT DATE: 20190730
